FAERS Safety Report 9956125 (Version 1)
Quarter: 2014Q1

REPORT INFORMATION
  Report Type: Report from Study
  Country: US (occurrence: US)
  Receive Date: 20140304
  Receipt Date: 20140304
  Transmission Date: 20141002
  Serious: No
  Sender: FDA-Public Use
  Company Number: US-ABBVIE-13P-163-1084604-00

PATIENT
  Age: 36 Year
  Sex: Female
  Weight: 99.88 kg

DRUGS (6)
  1. HUMIRA [Suspect]
     Indication: PSORIATIC ARTHROPATHY
     Dates: start: 201208, end: 201210
  2. HUMIRA [Suspect]
     Indication: PSORIASIS
     Dates: start: 201210
  3. CLOBETASOL [Concomitant]
     Indication: PSORIASIS
  4. UNKNOWN TOPICAL OF PSORIASIS [Concomitant]
     Indication: PSORIASIS
  5. METFORMIN [Concomitant]
     Indication: DIABETES MELLITUS
  6. METFORMIN [Concomitant]
     Indication: POLYCYSTIC OVARIES

REACTIONS (4)
  - Drug effect decreased [Not Recovered/Not Resolved]
  - Blood pressure increased [Not Recovered/Not Resolved]
  - Arthritis [Unknown]
  - Psoriasis [Unknown]
